FAERS Safety Report 6261255-4 (Version None)
Quarter: 2009Q3

REPORT INFORMATION
  Report Type: 
  Country: None (occurrence: None)
  Receive Date: 20090709
  Receipt Date: 20090625
  Transmission Date: 20100115
  Serious: Yes (Other)
  Sender: FDA-Public Use
  Company Number: JP-ROCHE-620417

PATIENT
  Sex: Female
  Weight: 53 kg

DRUGS (9)
  1. PEGASYS [Suspect]
     Indication: HEPATITIS C
     Route: 058
     Dates: start: 20080122, end: 20090127
  2. PEGASYS [Suspect]
     Route: 058
     Dates: start: 20090224, end: 20090302
  3. COPEGUS [Suspect]
     Indication: HEPATITIS C
     Route: 048
     Dates: start: 20080122, end: 20090127
  4. COPEGUS [Suspect]
     Route: 048
     Dates: start: 20090224, end: 20090302
  5. ASPARA-CA [Concomitant]
     Route: 048
     Dates: start: 19980613
  6. ONEALFA [Concomitant]
     Route: 048
     Dates: start: 19980613
  7. GASTROM [Concomitant]
     Route: 048
     Dates: start: 20000721
  8. CYANOCOBALAMIN [Concomitant]
     Route: 048
     Dates: start: 20051024, end: 20090401
  9. CLARITIN [Concomitant]
     Route: 048
     Dates: start: 20051024

REACTIONS (1)
  - FACIAL PALSY [None]
